FAERS Safety Report 6902354-0 (Version None)
Quarter: 2010Q3

REPORT INFORMATION
  Report Type: 
  Country: None (occurrence: None)
  Receive Date: 20100803
  Receipt Date: 20080510
  Transmission Date: 20110219
  Serious: No
  Sender: FDA-Public Use
  Company Number: US-PFIZER INC-2008042136

PATIENT
  Sex: Female
  Weight: 70.8 kg

DRUGS (5)
  1. LYRICA [Suspect]
     Indication: SCIATIC NERVE INJURY
  2. LYRICA [Suspect]
     Indication: SCIATICA
  3. CETIRIZINE HCL AND PSEUDOEPHEDRINE [Concomitant]
  4. LEVOTHYROXINE [Concomitant]
  5. ASTELIN [Concomitant]

REACTIONS (2)
  - PAIN [None]
  - WEIGHT INCREASED [None]
